FAERS Safety Report 12352054 (Version 2)
Quarter: 2016Q2

REPORT INFORMATION
  Report Type: Spontaneous
  Country: FR (occurrence: FR)
  Receive Date: 20160510
  Receipt Date: 20160518
  Transmission Date: 20160815
  Serious: Yes (Life-Threatening, Hospitalization)
  Sender: FDA-Public Use
  Company Number: FR-009507513-1605FRA002954

PATIENT
  Age: 70 Year
  Sex: Male

DRUGS (3)
  1. NOXAFIL [Suspect]
     Active Substance: POSACONAZOLE
     Dosage: 100 MG, BID
     Route: 048
     Dates: start: 201603
  2. FOLIC ACID. [Suspect]
     Active Substance: FOLIC ACID
     Indication: ANAEMIA
     Dosage: 10 MG, BID
     Route: 048
     Dates: start: 20160422, end: 20160422
  3. SILODYX [Suspect]
     Active Substance: SILODOSIN
     Indication: HYPERTROPHY
     Dosage: 8 MG, QD
     Route: 048
     Dates: start: 201603

REACTIONS (3)
  - Malaise [Recovered/Resolved]
  - Hypotension [Recovered/Resolved]
  - Urticaria [Recovered/Resolved]

NARRATIVE: CASE EVENT DATE: 20160422
